FAERS Safety Report 7274786-5 (Version None)
Quarter: 2011Q1

REPORT INFORMATION
  Report Type: 
  Country: None (occurrence: None)
  Receive Date: 20110202
  Receipt Date: 20110202
  Transmission Date: 20110831
  Serious: Yes (Disabling)
  Sender: FDA-Public Use
  Company Number: None

PATIENT
  Sex: Male
  Weight: 102.0593 kg

DRUGS (1)
  1. HUMIRA [Suspect]
     Indication: RHEUMATOID ARTHRITIS
     Dosage: 40 MG (0.8 ML) EVERY OTHER WEEK 057
     Dates: start: 20091128, end: 20091226

REACTIONS (7)
  - MUSCLE TWITCHING [None]
  - FATIGUE [None]
  - TREMOR [None]
  - VISION BLURRED [None]
  - PYREXIA [None]
  - ASTHENIA [None]
  - EYELID DISORDER [None]
